FAERS Safety Report 5349741-2 (Version None)
Quarter: 2007Q2

REPORT INFORMATION
  Report Type: 
  Country: None (occurrence: None)
  Receive Date: 20070607
  Receipt Date: 20070526
  Transmission Date: 20071010
  Serious: Yes (Other)
  Sender: FDA-Public Use
  Company Number: US-PFIZER INC-2007043116

PATIENT
  Sex: Male
  Weight: 104.54 kg

DRUGS (7)
  1. LYRICA [Suspect]
     Indication: LIMB DISCOMFORT
  2. ATORVASTATIN [Concomitant]
  3. VALSARTAN [Concomitant]
  4. WARFARIN SODIUM [Concomitant]
  5. METOPROLOL SUCCINATE [Concomitant]
  6. GLIMEPIRIDE [Concomitant]
  7. PARACETAMOL [Concomitant]

REACTIONS (7)
  - BALANCE DISORDER [None]
  - EAR DISORDER [None]
  - FALL [None]
  - MUSCULAR WEAKNESS [None]
  - PAIN IN EXTREMITY [None]
  - POLYURIA [None]
  - SPINAL FRACTURE [None]
